FAERS Safety Report 16415961 (Version 1)
Quarter: 2019Q2

REPORT INFORMATION
  Report Type: Spontaneous
  Country: US (occurrence: US)
  Receive Date: 20190611
  Receipt Date: 20190611
  Transmission Date: 20190711
  Serious: No
  Sender: FDA-Public Use
  Company Number: US-SA-2019SA157484

PATIENT
  Age: 38 Year
  Sex: Female

DRUGS (1)
  1. LEMTRADA [Suspect]
     Active Substance: ALEMTUZUMAB
     Dosage: UNK
     Dates: start: 201905, end: 201905

REACTIONS (7)
  - Dizziness [Unknown]
  - Fatigue [Unknown]
  - Urinary tract infection [Unknown]
  - Pain [Unknown]
  - Headache [Unknown]
  - Fungal infection [Unknown]
  - Asthenia [Unknown]

NARRATIVE: CASE EVENT DATE: 20190604
